FAERS Safety Report 6690545-6 (Version None)
Quarter: 2010Q2

REPORT INFORMATION
  Report Type: 
  Country: None (occurrence: None)
  Receive Date: 20100421
  Receipt Date: 20100408
  Transmission Date: 20101027
  Serious: Yes (Other)
  Sender: FDA-Public Use
  Company Number: FR-JNJFOC-20100404537

PATIENT
  Age: 60 Year
  Sex: Female

DRUGS (1)
  1. IXPRIM [Suspect]
     Indication: DRUG USE FOR UNKNOWN INDICATION
     Dosage: ONE TIMES ONCE A DAY
     Route: 048

REACTIONS (3)
  - ANURIA [None]
  - DYSPNOEA [None]
  - PALPITATIONS [None]
